FAERS Safety Report 23517490 (Version 1)
Quarter: 2024Q1

REPORT INFORMATION
  Report Type: Spontaneous
  Country: FR (occurrence: FR)
  Receive Date: 20240213
  Receipt Date: 20240213
  Transmission Date: 20240409
  Serious: Yes (Death)
  Sender: FDA-Public Use
  Company Number: None

PATIENT
  Age: 41 Year
  Sex: Male

DRUGS (3)
  1. XEOMIN [Interacting]
     Active Substance: INCOBOTULINUMTOXINA
     Indication: Muscle spasticity
     Route: 030
     Dates: start: 20231212, end: 20231212
  2. XEOMIN [Interacting]
     Active Substance: INCOBOTULINUMTOXINA
     Route: 030
     Dates: start: 20231212, end: 20231212
  3. AMIKACIN [Interacting]
     Active Substance: AMIKACIN
     Indication: Pneumonia aspiration
     Dosage: 500 MG
     Route: 042
     Dates: start: 20231219, end: 20231219

REACTIONS (1)
  - Cardio-respiratory arrest [Fatal]

NARRATIVE: CASE EVENT DATE: 20231219
